FAERS Safety Report 25331257 (Version 1)
Quarter: 2025Q2

REPORT INFORMATION
  Report Type: Spontaneous
  Country: CN (occurrence: CN)
  Receive Date: 20250519
  Receipt Date: 20250519
  Transmission Date: 20250716
  Serious: Yes (Other)
  Sender: PFIZER
  Company Number: CN-PFIZER INC-PV202500057578

PATIENT
  Age: 17 Year
  Sex: Female

DRUGS (6)
  1. TYGACIL [Suspect]
     Active Substance: TIGECYCLINE
     Indication: Anti-infective therapy
     Dosage: 50 MG, 2X/DAY
     Route: 041
     Dates: start: 20250409, end: 20250415
  2. TYGACIL [Suspect]
     Active Substance: TIGECYCLINE
     Indication: Abdominal infection
  3. XIN OU BO [Concomitant]
     Indication: Anti-infective therapy
     Dosage: 5 MG, 1X/DAY
     Route: 041
     Dates: start: 20250411, end: 20250411
  4. XIN OU BO [Concomitant]
     Indication: Penicillium infection
     Dosage: 10 MG, 1X/DAY
     Route: 041
     Dates: start: 20250412, end: 20250412
  5. XIN OU BO [Concomitant]
     Dosage: 15 MG, 1X/DAY
     Route: 041
     Dates: start: 20250413, end: 20250413
  6. XIN OU BO [Concomitant]
     Dosage: 20 MG, 1X/DAY
     Route: 041
     Dates: start: 20250414, end: 20250416

REACTIONS (3)
  - White blood cell count decreased [Recovering/Resolving]
  - Neutrophil count decreased [Recovering/Resolving]
  - Off label use [Unknown]

NARRATIVE: CASE EVENT DATE: 20250409
